FAERS Safety Report 24853632 (Version 1)
Quarter: 2025Q1

REPORT INFORMATION
  Report Type: Spontaneous
  Country: FR (occurrence: FR)
  Receive Date: 20250117
  Receipt Date: 20250117
  Transmission Date: 20250409
  Serious: Yes (Other)
  Sender: ABBVIE
  Company Number: FR-LUNDBECK-DKLU4009115

PATIENT
  Age: 55 Year
  Sex: Male

DRUGS (2)
  1. ESCITALOPRAM OXALATE [Suspect]
     Active Substance: ESCITALOPRAM OXALATE
     Indication: Mania
     Dosage: 20 MILLIGRAM
     Route: 065
  2. RISPERIDONE [Concomitant]
     Active Substance: RISPERIDONE
     Indication: Mania
     Dosage: 1 MILLIGRAM

REACTIONS (6)
  - Nerve injury [Unknown]
  - Adverse event [Unknown]
  - Weight increased [Unknown]
  - Product use in unapproved indication [Unknown]
  - Hormone level abnormal [Unknown]
  - Diabetes mellitus [Unknown]
